FAERS Safety Report 5670650-3 (Version None)
Quarter: 2008Q1

REPORT INFORMATION
  Report Type: 
  Country: None (occurrence: None)
  Receive Date: 20080314
  Receipt Date: 20080314
  Transmission Date: 20080703
  Serious: Yes (Other)
  Sender: FDA-Public Use
  Company Number: None

PATIENT
  Age: 54 Year
  Sex: Female
  Weight: 86.1834 kg

DRUGS (2)
  1. CHANTIX [Suspect]
     Indication: SMOKING CESSATION THERAPY
     Dosage: 1MG 2 A DAY PO
     Route: 048
     Dates: start: 20071031, end: 20071211
  2. CHANTIX [Suspect]

REACTIONS (14)
  - AGITATION [None]
  - CRYING [None]
  - DEPRESSION [None]
  - DISTURBANCE IN ATTENTION [None]
  - HOMICIDAL IDEATION [None]
  - IMPAIRED DRIVING ABILITY [None]
  - IMPAIRED WORK ABILITY [None]
  - LOSS OF EMPLOYMENT [None]
  - NIGHTMARE [None]
  - PERSONALITY DISORDER [None]
  - POOR QUALITY SLEEP [None]
  - STRESS [None]
  - VISION BLURRED [None]
  - VITREOUS FLOATERS [None]
